FAERS Safety Report 18905813 (Version 1)
Quarter: 2021Q1

REPORT INFORMATION
  Report Type: Spontaneous
  Country: US (occurrence: US)
  Receive Date: 20210217
  Receipt Date: 20210217
  Transmission Date: 20210420
  Serious: Yes (Other)
  Sender: FDA-Public Use
  Company Number: US-OTSUKA-2020_010890

PATIENT

DRUGS (8)
  1. PENTOSTATIN. [Suspect]
     Active Substance: PENTOSTATIN
     Indication: BONE MARROW CONDITIONING REGIMEN
     Dosage: 4 MG/M2 DAILY
     Route: 042
  2. BUSULFAN. [Suspect]
     Active Substance: BUSULFAN
     Indication: BONE MARROW CONDITIONING REGIMEN
     Dosage: 3.2 MG/KG, QD (DAY ?3 TO DAY ?2)
     Route: 042
  3. PENTOSTATIN. [Suspect]
     Active Substance: PENTOSTATIN
     Indication: ALLOGENIC STEM CELL TRANSPLANTATION
  4. CYCLOPHOSPHAMIDE. [Suspect]
     Active Substance: CYCLOPHOSPHAMIDE
     Indication: ALLOGENIC STEM CELL TRANSPLANTATION
     Dosage: 50 MG/KG, QD OR (25 MG/KG/DAY)
     Route: 042
  5. MYCOPHENOLATE MOFETIL. [Suspect]
     Active Substance: MYCOPHENOLATE MOFETIL
     Indication: ALLOGENIC STEM CELL TRANSPLANTATION
  6. MYCOPHENOLATE MOFETIL. [Suspect]
     Active Substance: MYCOPHENOLATE MOFETIL
     Indication: BONE MARROW CONDITIONING REGIMEN
     Dosage: 15 MG/KG, TID (UP TO 1000 MG/DOSE FROM DAYS +5 THROUGH +18?35)
     Route: 048
  7. BUSULFAN. [Suspect]
     Active Substance: BUSULFAN
     Indication: ALLOGENIC STEM CELL TRANSPLANTATION
  8. CYCLOPHOSPHAMIDE. [Suspect]
     Active Substance: CYCLOPHOSPHAMIDE
     Indication: BONE MARROW CONDITIONING REGIMEN
     Dosage: 3?5 MG/KG/DAY (WITH CAP OF 400 MG/DAY FROM DAY ?11 TO ?04)
     Route: 048

REACTIONS (1)
  - BK virus infection [Unknown]
